FAERS Safety Report 9990028 (Version 1)
Quarter: 2014Q1

REPORT INFORMATION
  Report Type: Spontaneous
  Country: US (occurrence: None)
  Receive Date: 20140123
  Receipt Date: 20140123
  Transmission Date: 20141002
  Serious: Yes (Hospitalization)
  Sender: FDA-Public Use
  Company Number: UTC-036366

PATIENT
  Age: 20 Year
  Sex: Female
  Weight: 49 kg

DRUGS (1)
  1. REMODULIN [Suspect]
     Indication: PULMONARY ARTERIAL HYPERTENSION
     Dosage: 535.68 UG/KG (0.372 UG/KG, 1 IN 1 MIN),INTRAVENOUS DRIP
     Route: 041
     Dates: start: 20061004

REACTIONS (2)
  - Sepsis [None]
  - Fluid retention [None]
